FAERS Safety Report 20561026 (Version 1)
Quarter: 2022Q1

REPORT INFORMATION
  Report Type: Spontaneous
  Country: CN (occurrence: CN)
  Receive Date: 20220307
  Receipt Date: 20220307
  Transmission Date: 20220423
  Serious: Yes (Hospitalization, Other)
  Sender: FDA-Public Use
  Company Number: CN-SA-2022SA072511

PATIENT
  Age: 54 Year
  Sex: Male
  Weight: 47 kg

DRUGS (9)
  1. RIFAMPIN [Interacting]
     Active Substance: RIFAMPIN
     Indication: Antibiotic prophylaxis
     Dosage: 0.45 G, QD
     Dates: start: 20210428, end: 20210511
  2. VALPROATE SODIUM [Interacting]
     Active Substance: VALPROATE SODIUM
     Indication: Epilepsy
     Dosage: 0.5 G, QOD, SUSTAINED-RELEASE TABLETS
     Route: 048
     Dates: end: 202105
  3. VALPROATE SODIUM [Interacting]
     Active Substance: VALPROATE SODIUM
     Dosage: 0.5 G, QD
     Dates: start: 202105
  4. ETHAMBUTOL [Concomitant]
     Active Substance: ETHAMBUTOL HYDROCHLORIDE
     Indication: Antibiotic prophylaxis
     Dosage: 0.75 G, QD
     Dates: start: 20210428
  5. PYRAZINAMIDE [Concomitant]
     Active Substance: PYRAZINAMIDE
     Indication: Antibiotic prophylaxis
     Dosage: 0.5 G, TID
     Dates: start: 20210428
  6. HERBALS\DIAMMONIUM GLYCYRRHIZINATE [Concomitant]
     Active Substance: HERBALS\DIAMMONIUM GLYCYRRHIZINATE
     Indication: Prophylaxis
     Dosage: 150 MG, TID, ENTERIC-COATED CAPSULES
     Route: 048
     Dates: start: 20210428
  7. CEFOPERAZONE SODIUM\SULBACTAM SODIUM [Concomitant]
     Active Substance: CEFOPERAZONE SODIUM\SULBACTAM SODIUM
     Indication: Anti-infective therapy
     Dosage: 2.0 G, Q8H
     Route: 042
     Dates: start: 20210426
  8. CARBOCYSTEINE [Concomitant]
     Active Substance: CARBOCYSTEINE
     Indication: Prophylaxis
     Dosage: 10 ML, TID
     Dates: start: 20210426
  9. VITAMIN B1 [Concomitant]
     Active Substance: THIAMINE HYDROCHLORIDE
     Indication: Respiratory therapy
     Dosage: UNK, ACUPOINT INJECTION
     Dates: start: 20210426

REACTIONS (3)
  - Seizure [Recovered/Resolved]
  - Anticonvulsant drug level decreased [Recovered/Resolved]
  - Drug interaction [Recovered/Resolved]

NARRATIVE: CASE EVENT DATE: 20210101
